FAERS Safety Report 13660408 (Version 1)
Quarter: 2017Q2

REPORT INFORMATION
  Report Type: Spontaneous
  Country: CA (occurrence: CA)
  Receive Date: 20170616
  Receipt Date: 20170616
  Transmission Date: 20170830
  Serious: Yes (Disabling)
  Sender: FDA-Public Use
  Company Number: CA-TEVA-778089ACC

PATIENT
  Age: 67 Year
  Sex: Female
  Weight: 77.18 kg

DRUGS (2)
  1. MELOXICAM. [Concomitant]
     Active Substance: MELOXICAM
  2. ZOLEDRONIC ACID INJECTION FOR I.V INFUSION ONLY [Suspect]
     Active Substance: ZOLEDRONIC ACID
     Indication: OSTEOPENIA
     Dosage: 5 MILLIGRAM DAILY;
     Route: 042

REACTIONS (1)
  - Gait disturbance [Recovered/Resolved]
